FAERS Safety Report 4442290-5 (Version None)
Quarter: 2004Q3

REPORT INFORMATION
  Report Type: 
  Country: None (occurrence: None)
  Receive Date: 20040903
  Receipt Date: 20040719
  Transmission Date: 20050211
  Serious: Yes (Other)
  Sender: FDA-Public Use
  Company Number: 2004UW15004

PATIENT
  Age: 48 Year
  Sex: Female
  Weight: 66.6788 kg

DRUGS (5)
  1. CRESTOR [Suspect]
     Indication: HYPERCHOLESTEROLAEMIA
     Dosage: 10 MG QD PO
     Route: 048
  2. LOPID [Concomitant]
  3. TOPROL-XL [Concomitant]
  4. IMDUR [Concomitant]
  5. DEMADEX [Concomitant]

REACTIONS (2)
  - DIFFICULTY IN WALKING [None]
  - MYALGIA [None]
